FAERS Safety Report 10072439 (Version 2)
Quarter: 2014Q2

REPORT INFORMATION
  Report Type: Spontaneous
  Country: US (occurrence: US)
  Receive Date: 20140411
  Receipt Date: 20140603
  Transmission Date: 20141212
  Serious: Yes (Death, Hospitalization)
  Sender: FDA-Public Use
  Company Number: US-NOVOPROD-405845

PATIENT
  Age: 50 Year
  Sex: Female
  Weight: 136.5 kg

DRUGS (2)
  1. VICTOZA [Suspect]
     Indication: TYPE 2 DIABETES MELLITUS
     Dosage: 18MG/3ML ONCE DAILY
     Route: 058
     Dates: start: 20120614, end: 20120915
  2. BYETTA [Suspect]
     Indication: TYPE 2 DIABETES MELLITUS
     Dosage: 5MCG TWICE DAILY
     Route: 058
     Dates: start: 20120202, end: 20120427

REACTIONS (1)
  - Pancreatic carcinoma [Fatal]
